FAERS Safety Report 9187958 (Version 1)
Quarter: 2013Q1

REPORT INFORMATION
  Report Type: Spontaneous
  Country: US (occurrence: US)
  Receive Date: 20130325
  Receipt Date: 20130325
  Transmission Date: 20140127
  Serious: No
  Sender: FDA-Public Use
  Company Number: US-MYLANLABS-2012S1020819

PATIENT
  Age: 59 Year
  Sex: Male
  Weight: 95.26 kg

DRUGS (14)
  1. FENTANYL TRANSDERMAL SYSTEM [Suspect]
     Indication: ARTHRALGIA
     Dosage: CHANGES Q. 48 HOURS.
     Route: 062
     Dates: start: 2006
  2. CITALOPRAM [Concomitant]
     Indication: DEPRESSION
  3. FENOFIBRATE [Concomitant]
     Indication: BLOOD CHOLESTEROL INCREASED
  4. FISH OIL [Concomitant]
     Indication: BLOOD CHOLESTEROL INCREASED
  5. GABAPENTIN [Concomitant]
     Indication: PAIN
  6. KLONOPIN [Concomitant]
     Indication: INSOMNIA
  7. METHADONE [Concomitant]
     Indication: PAIN
  8. MIRTAZAPINE [Concomitant]
     Indication: INSOMNIA
  9. MULTIVITAMIN [Concomitant]
  10. PANTOPRAZOLE [Concomitant]
     Indication: ABDOMINAL PAIN UPPER
  11. OXYCODONE [Concomitant]
     Indication: PAIN
  12. SYNTHROID [Concomitant]
     Indication: HYPOTHYROIDISM
  13. TESTOSTERONE [Concomitant]
     Indication: ANDROGEN DEFICIENCY
     Route: 030
  14. RELPAX [Concomitant]
     Indication: MIGRAINE

REACTIONS (3)
  - Drug effect decreased [Recovered/Resolved]
  - Arthralgia [Recovered/Resolved]
  - Drug withdrawal syndrome [Recovered/Resolved]
